FAERS Safety Report 16727569 (Version 2)
Quarter: 2019Q4

REPORT INFORMATION
  Report Type: Report from Study
  Country: US (occurrence: US)
  Receive Date: 20190822
  Receipt Date: 20191211
  Transmission Date: 20200122
  Serious: No
  Sender: FDA-Public Use
  Company Number: PHEH2019US034253

PATIENT
  Sex: Female

DRUGS (2)
  1. COSENTYX [Suspect]
     Active Substance: SECUKINUMAB
     Dosage: 150 UNK
     Route: 065
  2. COSENTYX [Suspect]
     Active Substance: SECUKINUMAB
     Indication: PSORIATIC ARTHROPATHY
     Dosage: 300 MG, UNK
     Route: 065

REACTIONS (6)
  - Peripheral swelling [Unknown]
  - Product dispensing error [Unknown]
  - Oral herpes [Unknown]
  - Musculoskeletal stiffness [Unknown]
  - Lip pruritus [Unknown]
  - Incorrect dose administered [Unknown]
